FAERS Safety Report 15417439 (Version 1)
Quarter: 2018Q4

REPORT INFORMATION
  Report Type: Spontaneous
  Country: GB (occurrence: GB)
  Receive Date: 20180924
  Receipt Date: 20180924
  Transmission Date: 20190204
  Serious: Yes (Death)
  Sender: FDA-Public Use
  Company Number: GB-TEVA-2018-GB-957220

PATIENT
  Sex: Male

DRUGS (2)
  1. TRAMADOL - ACTAVIS [Suspect]
     Active Substance: TRAMADOL
  2. DIHYDROCODEINE - ACTAVIS [Suspect]
     Active Substance: DIHYDROCODEINE

REACTIONS (1)
  - Cardiac failure congestive [Fatal]
